FAERS Safety Report 26194865 (Version 1)
Quarter: 2025Q4

REPORT INFORMATION
  Report Type: Spontaneous
  Country: US (occurrence: US)
  Receive Date: 20251224
  Receipt Date: 20251224
  Transmission Date: 20260118
  Serious: Yes (Hospitalization, Disabling)
  Sender: MACLEODS
  Company Number: US-MLMSERVICE-20251210-PI744761-00198-1

PATIENT

DRUGS (1)
  1. LEVOFLOXACIN [Suspect]
     Active Substance: LEVOFLOXACIN
     Indication: Urinary tract infection
     Route: 065

REACTIONS (2)
  - Dysphagia [Recovering/Resolving]
  - Myoclonus [Recovering/Resolving]
